FAERS Safety Report 17007871 (Version 1)
Quarter: 2019Q4

REPORT INFORMATION
  Report Type: Spontaneous
  Country: GB (occurrence: GB)
  Receive Date: 20191108
  Receipt Date: 20191108
  Transmission Date: 20200122
  Serious: Yes (Other)
  Sender: FDA-Public Use
  Company Number: GB-TEVA-2019-GB-1135387

PATIENT
  Age: 6 Month
  Sex: Male
  Weight: 8 kg

DRUGS (8)
  1. FENTANYL. [Concomitant]
     Active Substance: FENTANYL
  2. RANITIDINE. [Concomitant]
     Active Substance: RANITIDINE
  3. TEICOPLANIN [Concomitant]
     Active Substance: TEICOPLANIN
  4. FUROSEMIDE. [Concomitant]
     Active Substance: FUROSEMIDE
  5. SPIRONOLACTONE. [Concomitant]
     Active Substance: SPIRONOLACTONE
  6. PARACETAMOL [Concomitant]
     Active Substance: ACETAMINOPHEN
  7. CIPROFLOXACIN. [Suspect]
     Active Substance: CIPROFLOXACIN
     Indication: VASCULAR DEVICE INFECTION
     Dosage: 150 MG
     Route: 048
     Dates: start: 20191012, end: 20191013
  8. PIPERACILLIN AND TAZOBACTAM [Concomitant]
     Active Substance: PIPERACILLIN SODIUM\TAZOBACTAM SODIUM

REACTIONS (1)
  - Generalised tonic-clonic seizure [Recovered/Resolved]

NARRATIVE: CASE EVENT DATE: 20191013
